FAERS Safety Report 25157704 (Version 3)
Quarter: 2025Q3

REPORT INFORMATION
  Report Type: Spontaneous
  Country: US (occurrence: US)
  Receive Date: 20250403
  Receipt Date: 20250703
  Transmission Date: 20251020
  Serious: Yes (Hospitalization, Other)
  Sender: BRISTOL-MYERS SQUIBB COMPANY
  Company Number: US-EXELIXIS-EXL-2025-006248

PATIENT
  Age: 74 Year
  Sex: Female

DRUGS (4)
  1. NIVOLUMAB [Suspect]
     Active Substance: NIVOLUMAB
     Indication: Metastatic renal cell carcinoma
     Dosage: 480 MILLIGRAM, Q4WEEKS
     Route: 042
     Dates: start: 20240624, end: 20250305
  2. NIVOLUMAB [Suspect]
     Active Substance: NIVOLUMAB
     Dosage: 480 MILLIGRAM, Q4WEEKS
     Route: 042
     Dates: start: 20250404
  3. CABOZANTINIB [Suspect]
     Active Substance: CABOZANTINIB
     Indication: Metastatic renal cell carcinoma
     Dosage: 20 MILLIGRAM, QD
     Route: 048
     Dates: start: 20240624, end: 20250322
  4. CABOZANTINIB [Suspect]
     Active Substance: CABOZANTINIB
     Dosage: 20 MILLIGRAM, QD
     Route: 048
     Dates: start: 20250404

REACTIONS (5)
  - Gastrooesophageal reflux disease [Unknown]
  - Blood bilirubin increased [Unknown]
  - Cholecystitis [Recovering/Resolving]
  - Vomiting [Recovered/Resolved]
  - Klebsiella infection [Unknown]

NARRATIVE: CASE EVENT DATE: 20250321
